FAERS Safety Report 4565799-2 (Version None)
Quarter: 2005Q1

REPORT INFORMATION
  Report Type: 
  Country: None (occurrence: None)
  Receive Date: 20050128
  Receipt Date: 20050119
  Transmission Date: 20050727
  Serious: Yes (Life-Threatening)
  Sender: FDA-Public Use
  Company Number: 2005017147

PATIENT
  Age: 69 Year
  Sex: Female
  Weight: 87 kg

DRUGS (14)
  1. AMLODIPINE [Suspect]
     Indication: ILL-DEFINED DISORDER
     Dosage: 5 MG (5 MG, 1 IN 1 D), ORAL
     Route: 048
     Dates: start: 20000101
  2. INDAPAMIDE [Suspect]
     Indication: ILL-DEFINED DISORDER
     Dosage: 1 IN 1 D, ORAL
     Route: 048
     Dates: start: 20030601, end: 20040101
  3. GENTAMICIN [Suspect]
     Indication: ENDOCARDITIS
     Dosage: INTRAVENOUS
     Route: 042
     Dates: start: 20031231, end: 20040101
  4. AMOXICILLIN [Suspect]
     Indication: ENDOCARDITIS
     Dosage: ORAL
     Route: 048
     Dates: start: 20031231, end: 20040101
  5. DUORAL (PARACETAMOL) [Suspect]
     Indication: ENDOCARDITIS
     Dosage: INTRAVENOUS
     Route: 042
     Dates: start: 20031231, end: 20040101
  6. AMOXICILLIN TRIHYDRATE [Concomitant]
  7. ACETAMINOPHEN [Concomitant]
  8. IBUPROFEN [Concomitant]
  9. HEXAPHENUMINE COMPOSE (BICLOTYMOL, CHLORPHENAMINE MALEATE, GUAIFENESIN [Concomitant]
  10. RHINOFLUIMUCIL (ACETYLSALCYSTEINE, BENZALKONIUM CHLORIDE, TUAMINOHEPTA [Concomitant]
  11. LACTULOSE [Concomitant]
  12. PSEUDOEPHEDRINE HCL [Concomitant]
  13. FERVEX (ASCORBIC ACID, PARACETAMOL, PHENIRAMINE MALEATE) [Concomitant]
  14. OROPIVALONE (BACITRACIN ZINC, CHLORMETHINE) [Concomitant]

REACTIONS (5)
  - ALPHA 1 GLOBULIN INCREASED [None]
  - ANGIONEUROTIC OEDEMA [None]
  - ENDOCARDITIS [None]
  - PROTEINURIA [None]
  - URINARY TRACT INFECTION [None]
